FAERS Safety Report 8947952 (Version 5)
Quarter: 2013Q3

REPORT INFORMATION
  Report Type: Spontaneous
  Country: US (occurrence: None)
  Receive Date: 20121127
  Receipt Date: 20130911
  Transmission Date: 20140515
  Serious: Yes (Death, Other)
  Sender: FDA-Public Use
  Company Number: ADR-2012-02131

PATIENT
  Age: 14 Year
  Sex: Female

DRUGS (2)
  1. LIORESAL [Suspect]
     Indication: MUSCLE SPASTICITY
  2. LIORESAL [Suspect]

REACTIONS (14)
  - Device related infection [None]
  - Cardiac arrest [None]
  - Vessel perforation [None]
  - Post procedural infection [None]
  - Post procedural haemorrhage [None]
  - Arterial haemorrhage [None]
  - Hypotension [None]
  - Haemodynamic instability [None]
  - Tachycardia [None]
  - Capillary leak syndrome [None]
  - Generalised oedema [None]
  - Generalised oedema [None]
  - Wound complication [None]
  - Sepsis [None]
